FAERS Safety Report 20481701 (Version 7)
Quarter: 2022Q3

REPORT INFORMATION
  Report Type: Report from Study
  Country: US (occurrence: US)
  Receive Date: 20220216
  Receipt Date: 20220923
  Transmission Date: 20221026
  Serious: Yes (Life-Threatening, Hospitalization, Other)
  Sender: FDA-Public Use
  Company Number: US-NOVARTISPH-NVSC2022US029032

PATIENT
  Age: 70 Year
  Sex: Male
  Weight: 127 kg

DRUGS (12)
  1. LAMPRENE [Suspect]
     Active Substance: CLOFAZIMINE
     Indication: Mycobacterium abscessus infection
     Dosage: 50 MG, QD
     Route: 048
     Dates: start: 20211220, end: 20220201
  2. LAMPRENE [Suspect]
     Active Substance: CLOFAZIMINE
     Dosage: 50 MG, QD
     Route: 048
     Dates: start: 20211220
  3. LAMPRENE [Suspect]
     Active Substance: CLOFAZIMINE
     Dosage: 50 MG, QD
     Route: 048
     Dates: start: 20220804
  4. AMIKACIN [Concomitant]
     Active Substance: AMIKACIN
     Indication: Mycobacterium abscessus infection
     Dosage: 200 MG, QW
     Route: 042
     Dates: start: 20211028, end: 20220201
  5. AMIKACIN [Concomitant]
     Active Substance: AMIKACIN
     Dosage: 800 MG, QW
     Route: 042
     Dates: start: 20211026, end: 20220206
  6. AMIKACIN [Concomitant]
     Active Substance: AMIKACIN
     Dosage: 800 MG, QW
     Route: 042
     Dates: start: 20211026, end: 20220216
  7. AMIKACIN [Concomitant]
     Active Substance: AMIKACIN
     Dosage: 800 MG, QW
     Route: 042
     Dates: start: 20211026, end: 20220528
  8. AMIKACIN [Concomitant]
     Active Substance: AMIKACIN
     Dosage: 800 MG, QW
     Route: 042
     Dates: start: 20211026, end: 20220526
  9. OMADACYCLINE [Concomitant]
     Active Substance: OMADACYCLINE
     Indication: Mycobacterium abscessus infection
     Dosage: 200 MG, QD
     Route: 048
     Dates: start: 20211120, end: 20220201
  10. OMADACYCLINE [Concomitant]
     Active Substance: OMADACYCLINE
     Dosage: 300 MG, QD
     Route: 048
     Dates: start: 20211120, end: 20220206
  11. OMADACYCLINE [Concomitant]
     Active Substance: OMADACYCLINE
     Dosage: 300 MG, QD
     Route: 048
     Dates: start: 20211120, end: 20220223
  12. OMADACYCLINE [Concomitant]
     Active Substance: OMADACYCLINE
     Dosage: 300 MG, QD
     Route: 048
     Dates: start: 20211120, end: 20220804

REACTIONS (6)
  - Gastric perforation [Recovered/Resolved]
  - Gastric ulcer [Not Recovered/Not Resolved]
  - Gastrointestinal haemorrhage [Unknown]
  - Melaena [Not Recovered/Not Resolved]
  - Anaemia [Not Recovered/Not Resolved]
  - Abdominal pain [Unknown]

NARRATIVE: CASE EVENT DATE: 20220102
